FAERS Safety Report 7445878-2 (Version None)
Quarter: 2011Q2

REPORT INFORMATION
  Report Type: 
  Country: None (occurrence: None)
  Receive Date: 20110429
  Receipt Date: 20110422
  Transmission Date: 20111010
  Serious: Yes (Other)
  Sender: FDA-Public Use
  Company Number: JP-SANOFI-AVENTIS-2011SA025066

PATIENT
  Age: 59 Year
  Sex: Male
  Weight: 62 kg

DRUGS (4)
  1. LANTUS [Suspect]
     Dosage: DOSE:5 UNIT(S)
     Route: 058
     Dates: start: 20110416, end: 20110422
  2. LANTUS [Suspect]
     Indication: BLOOD GLUCOSE INCREASED
     Route: 058
     Dates: start: 20081201
  3. LANTUS [Suspect]
     Dosage: DOSE:3 UNIT(S)
     Route: 058
     Dates: start: 20110411, end: 20110415
  4. LANTUS [Suspect]
     Dosage: DOSE:7 UNIT(S)
     Route: 058
     Dates: end: 20110410

REACTIONS (1)
  - ARTHRALGIA [None]
